FAERS Safety Report 22638621 (Version 2)
Quarter: 2023Q2

REPORT INFORMATION
  Report Type: Spontaneous
  Country: AU (occurrence: AU)
  Receive Date: 20230626
  Receipt Date: 20230630
  Transmission Date: 20230722
  Serious: Yes (Hospitalization, Other)
  Sender: FDA-Public Use
  Company Number: AU-002147023-NVSC2023AU142121

PATIENT
  Age: 51 Year
  Sex: Female

DRUGS (11)
  1. METOPROLOL [Suspect]
     Active Substance: METOPROLOL
     Indication: Hypertension
     Dosage: 50 MG, BID (A YEAR AGO)
     Route: 065
  2. METOPROLOL [Suspect]
     Active Substance: METOPROLOL
     Dosage: 25 MG, BID
     Route: 065
  3. METOPROLOL [Suspect]
     Active Substance: METOPROLOL
     Dosage: 100 MG, QD (DOSE CHANGED)
     Route: 065
  4. METOPROLOL [Suspect]
     Active Substance: METOPROLOL
     Dosage: 50 MG, BID (25 MORNING AND 25 AT NIGHT)
     Route: 065
  5. METOPROLOL [Suspect]
     Active Substance: METOPROLOL
     Dosage: 37.5 MG (12.5MG IN MORNING, 25MG IN THE EVENING)
     Route: 065
  6. METOPROLOL [Suspect]
     Active Substance: METOPROLOL
     Dosage: UNK
     Route: 065
  7. METOPROLOL [Suspect]
     Active Substance: METOPROLOL
     Dosage: 12.5 MG, BID (IN MORNING AND EVENING)
     Route: 065
  8. RAMIPRIL [Suspect]
     Active Substance: RAMIPRIL
     Indication: Product used for unknown indication
     Dosage: UNK
     Route: 065
  9. AMLODIPINE [Suspect]
     Active Substance: AMLODIPINE BESYLATE
     Indication: Product used for unknown indication
     Dosage: UNK
     Route: 065
  10. ATACAND [Suspect]
     Active Substance: CANDESARTAN CILEXETIL
     Indication: Product used for unknown indication
     Dosage: UNK
     Route: 065
  11. DEXIBUPROFEN [Suspect]
     Active Substance: DEXIBUPROFEN
     Indication: Product used for unknown indication
     Dosage: UNK
     Route: 065

REACTIONS (37)
  - Weight decreased [Unknown]
  - Chills [Unknown]
  - Tremor [Unknown]
  - Paraesthesia [Unknown]
  - Hypertension [Unknown]
  - Renal failure [Unknown]
  - Chronic kidney disease [Unknown]
  - Acute kidney injury [Unknown]
  - Tinnitus [Unknown]
  - Hot flush [Unknown]
  - Aphonia [Unknown]
  - Chest discomfort [Unknown]
  - Anal incontinence [Unknown]
  - Skin burning sensation [Unknown]
  - Disorientation [Unknown]
  - Dyskinesia [Unknown]
  - Heart rate increased [Unknown]
  - Throat tightness [Unknown]
  - Asthenia [Unknown]
  - Muscle tightness [Unknown]
  - Hypoaesthesia [Unknown]
  - Sensory loss [Unknown]
  - Gastric dilatation [Unknown]
  - Pain [Unknown]
  - Muscle twitching [Unknown]
  - Decreased appetite [Unknown]
  - Dizziness [Unknown]
  - Palpitations [Unknown]
  - Chest pain [Unknown]
  - Abdominal pain upper [Unknown]
  - Hypotension [Unknown]
  - Dyspnoea [Unknown]
  - Vision blurred [Unknown]
  - Nausea [Unknown]
  - Drug hypersensitivity [Unknown]
  - Drug intolerance [Unknown]
  - Product dose omission issue [Unknown]

NARRATIVE: CASE EVENT DATE: 20230502
